FAERS Safety Report 19796888 (Version 1)
Quarter: 2021Q3

REPORT INFORMATION
  Report Type: Spontaneous
  Country: US (occurrence: US)
  Receive Date: 20210907
  Receipt Date: 20210907
  Transmission Date: 20211014
  Serious: Yes (Other)
  Sender: FDA-Public Use
  Company Number: US-ENDO PHARMACEUTICALS INC-2021-010992

PATIENT
  Sex: Male

DRUGS (8)
  1. PAREGORIC [Concomitant]
     Active Substance: MORPHINE
     Indication: DIARRHOEA
     Dosage: UNK UNKNOWN, UNKNOWN
     Route: 065
  2. CHOLESTYRAMINE. [Suspect]
     Active Substance: CHOLESTYRAMINE
     Indication: TOTAL BILE ACIDS INCREASED
     Dosage: ONE PACKET, TID, BEFORE EACH MEAL
     Route: 048
  3. CHOLESTYRAMINE. [Suspect]
     Active Substance: CHOLESTYRAMINE
     Dosage: TWO PACKETS, BID, BEFORE EACH MEAL
     Route: 065
  4. OTHER MEDICATIONS [Concomitant]
     Active Substance: UNSPECIFIED INGREDIENT
     Indication: PRODUCT USED FOR UNKNOWN INDICATION
     Dosage: UNK UNKNOWN, DAILY
     Route: 065
  5. OTHER ANTIDIARRHEALS [Concomitant]
     Indication: DIARRHOEA
     Dosage: UNK UNKNOWN, UNKNOWN
     Route: 065
  6. LOMOTIL [Concomitant]
     Active Substance: ATROPINE SULFATE\DIPHENOXYLATE HYDROCHLORIDE
     Indication: DIARRHOEA
     Dosage: UNK UNKNOWN, UNKNOWN
     Route: 065
  7. SUCRALFATE. [Suspect]
     Active Substance: SUCRALFATE
     Indication: GRANULOMA
     Dosage: UNK UNKNOWN, UNKNOWN
     Route: 065
  8. SUCRALFATE. [Suspect]
     Active Substance: SUCRALFATE
     Indication: GASTROINTESTINAL TRACT IRRITATION

REACTIONS (7)
  - Dysphonia [Unknown]
  - Gallbladder disorder [Unknown]
  - Chills [Unknown]
  - Off label use [Unknown]
  - Constipation [Unknown]
  - Insomnia [Unknown]
  - Ulcer [Unknown]

NARRATIVE: CASE EVENT DATE: 2018
